FAERS Safety Report 23289925 (Version 1)
Quarter: 2023Q4

REPORT INFORMATION
  Report Type: Report from Study
  Country: GB (occurrence: GB)
  Receive Date: 20231212
  Receipt Date: 20231212
  Transmission Date: 20240110
  Serious: Yes (Other)
  Sender: FDA-Public Use
  Company Number: GB-SANDOZ-SDZ2023GB050863

PATIENT
  Sex: Male

DRUGS (1)
  1. HYRIMOZ [Suspect]
     Active Substance: ADALIMUMAB-ADAZ
     Indication: Ankylosing spondylitis
     Dosage: 40 MG, Q2W
     Route: 058
     Dates: start: 20230817

REACTIONS (6)
  - Lower respiratory tract infection [Unknown]
  - Ankylosing spondylitis [Not Recovered/Not Resolved]
  - Injection site pain [Unknown]
  - Impaired healing [Unknown]
  - Drug ineffective [Unknown]
  - Arthropod sting [Recovered/Resolved]
